FAERS Safety Report 9738941 (Version 8)
Quarter: 2016Q1

REPORT INFORMATION
  Report Type: Report from Study
  Country: DE (occurrence: DE)
  Receive Date: 20131209
  Receipt Date: 20160322
  Transmission Date: 20160526
  Serious: Yes (Death, Hospitalization)
  Sender: FDA-Public Use
  Company Number: DE-ROCHE-1213950

PATIENT
  Age: 49 Year
  Sex: Female
  Weight: 58 kg

DRUGS (31)
  1. BEVACIZUMAB [Suspect]
     Active Substance: BEVACIZUMAB
     Route: 065
     Dates: start: 20130422
  2. ZOFRAN [Concomitant]
     Active Substance: ONDANSETRON HYDROCHLORIDE
     Indication: VOMITING
     Dosage: ON THE DAY OF CHEMOTHERAPY
     Route: 048
     Dates: start: 20130302, end: 20130616
  3. ARANESP [Concomitant]
     Active Substance: DARBEPOETIN ALFA
     Route: 058
     Dates: start: 20130528, end: 20130528
  4. PACLITAXEL. [Suspect]
     Active Substance: PACLITAXEL
     Route: 065
     Dates: start: 20130325
  5. PACLITAXEL. [Suspect]
     Active Substance: PACLITAXEL
     Route: 065
  6. CARBOPLATIN. [Suspect]
     Active Substance: CARBOPLATIN
     Indication: BREAST CANCER
     Dosage: LAST DOSE PRIOR TO SAE ON 14/JUN/2013
     Route: 065
     Dates: start: 20130301, end: 20130614
  7. TAVEGIL [Concomitant]
     Active Substance: CLEMASTINE FUMARATE
     Indication: HYPERSENSITIVITY
     Route: 042
     Dates: start: 20130301, end: 20130614
  8. TAVEGIL [Concomitant]
     Active Substance: CLEMASTINE FUMARATE
     Indication: NAUSEA
  9. DEXAMETHASON [Concomitant]
     Active Substance: DEXAMETHASONE
     Indication: HYPERSENSITIVITY
     Dosage: ONE DAY BEFORE CHEMOTHERAPY
     Route: 042
     Dates: start: 20130301, end: 20130614
  10. NEULASTA [Concomitant]
     Active Substance: PEGFILGRASTIM
     Dosage: ONE DAY AFTER CHEMOTHERAPY
     Route: 058
     Dates: start: 20130528, end: 20130615
  11. BEVACIZUMAB [Suspect]
     Active Substance: BEVACIZUMAB
     Route: 065
     Dates: start: 20130325
  12. PACLITAXEL. [Suspect]
     Active Substance: PACLITAXEL
     Route: 065
  13. CARBOPLATIN. [Suspect]
     Active Substance: CARBOPLATIN
     Route: 065
     Dates: start: 20130422
  14. CARBOPLATIN. [Suspect]
     Active Substance: CARBOPLATIN
     Route: 065
  15. BEVACIZUMAB [Suspect]
     Active Substance: BEVACIZUMAB
     Indication: BREAST CANCER
     Dosage: LAST DOSE PRIOR TO SAE ON 14/JUN/2013
     Route: 065
     Dates: start: 20130325, end: 20130614
  16. PACLITAXEL. [Suspect]
     Active Substance: PACLITAXEL
     Indication: BREAST CANCER
     Dosage: LAST DOSE PRIOR TO SAE ON 14/JUN/2013
     Route: 065
     Dates: start: 20130301, end: 20130614
  17. PACLITAXEL. [Suspect]
     Active Substance: PACLITAXEL
     Route: 065
     Dates: start: 20130301
  18. IVEMEND [Concomitant]
     Active Substance: FOSAPREPITANT DIMEGLUMINE
     Indication: NAUSEA
     Dosage: ON THE DAY OF CHEMOTHERAPY
     Route: 042
     Dates: start: 20130301, end: 20130614
  19. RANITIDIN [Concomitant]
     Active Substance: RANITIDINE HYDROCHLORIDE
     Indication: PROPHYLAXIS AGAINST GASTROINTESTINAL ULCER
     Dosage: ON THE DAY OF CHEMOTHERAPY
     Route: 042
     Dates: start: 20130301, end: 20130614
  20. ONDANSETRON [Concomitant]
     Active Substance: ONDANSETRON
     Indication: VOMITING
  21. NEULASTA [Concomitant]
     Active Substance: PEGFILGRASTIM
     Dosage: ONE DAY AFTER CHEMOTHERAPY
     Route: 058
     Dates: start: 20130302, end: 20130615
  22. BEVACIZUMAB [Suspect]
     Active Substance: BEVACIZUMAB
     Route: 065
     Dates: start: 20130614
  23. CARBOPLATIN. [Suspect]
     Active Substance: CARBOPLATIN
     Route: 065
  24. DEXAMETHASON [Concomitant]
     Active Substance: DEXAMETHASONE
     Indication: NAUSEA
     Dosage: ONE DAY BEFORE CHEMOTHERAPY
     Route: 042
     Dates: start: 20130228, end: 20130613
  25. IVEMEND [Concomitant]
     Active Substance: FOSAPREPITANT DIMEGLUMINE
     Indication: VOMITING
  26. ONDANSETRON [Concomitant]
     Active Substance: ONDANSETRON
     Indication: NAUSEA
     Dosage: ON THE DAY OF CHEMOTHERAPY
     Route: 042
     Dates: start: 20130301, end: 20130614
  27. FERINJECT [Concomitant]
     Active Substance: FERRIC CARBOXYMALTOSE
     Indication: ANAEMIA
     Route: 042
     Dates: start: 20130528, end: 20130528
  28. PACLITAXEL. [Suspect]
     Active Substance: PACLITAXEL
     Route: 065
     Dates: start: 20130422
  29. CARBOPLATIN. [Suspect]
     Active Substance: CARBOPLATIN
     Route: 065
  30. CARBOPLATIN. [Suspect]
     Active Substance: CARBOPLATIN
     Route: 065
     Dates: start: 20130325
  31. RATIOGRASTIM [Concomitant]
     Active Substance: FILGRASTIM
     Route: 058
     Dates: start: 20130423, end: 20130423

REACTIONS (8)
  - Sepsis [Unknown]
  - General physical health deterioration [Recovered/Resolved]
  - Sepsis [Recovered/Resolved]
  - Febrile neutropenia [Recovered/Resolved]
  - Ileus [Fatal]
  - Bacteraemia [Recovered/Resolved]
  - Urosepsis [Recovered/Resolved]
  - Hydronephrosis [Recovered/Resolved]

NARRATIVE: CASE EVENT DATE: 20130325
